FAERS Safety Report 9690863 (Version 7)
Quarter: 2014Q2

REPORT INFORMATION
  Report Type: Report from Study
  Country: JP (occurrence: JP)
  Receive Date: 20131115
  Receipt Date: 20140515
  Transmission Date: 20141212
  Serious: Yes (Death)
  Sender: FDA-Public Use
  Company Number: JP-BAYER-2013-133550

PATIENT
  Age: 60 Year
  Sex: Male
  Weight: 53 kg

DRUGS (8)
  1. STIVARGA [Suspect]
     Indication: COLON CANCER
     Dosage: 160 MG, QD (ON 3 WEEKS AND OFF 1 WEEK)
     Route: 048
     Dates: start: 20131024, end: 20131028
  2. STIVARGA [Suspect]
     Indication: RECTAL CANCER
  3. NAIXAN [Concomitant]
     Dosage: 100 MG, BID
     Route: 048
     Dates: start: 20130827, end: 20131028
  4. PROTECADIN [Concomitant]
     Dosage: 10 MG, BID
     Route: 048
     Dates: start: 20130827, end: 20131028
  5. MAGMITT [Concomitant]
     Dosage: 330 MG, TID
     Route: 048
     Dates: start: 20131009, end: 20131028
  6. KERATINAMIN [Concomitant]
     Indication: DRUG TOXICITY PROPHYLAXIS
     Dosage: UNK
     Route: 061
     Dates: start: 20131023, end: 20131028
  7. WHITE PETROLEUM [Concomitant]
     Dosage: UNK
     Route: 061
     Dates: start: 20131023, end: 20131028
  8. DERMOVATE [Concomitant]
     Indication: DRUG TOXICITY PROPHYLAXIS
     Dosage: UNK
     Route: 061
     Dates: start: 20131023, end: 20131028

REACTIONS (3)
  - Hepatitis fulminant [Fatal]
  - Sepsis [Fatal]
  - Gastrointestinal perforation [Fatal]
